FAERS Safety Report 5126143-5 (Version None)
Quarter: 2006Q3

REPORT INFORMATION
  Report Type: 
  Country: None (occurrence: None)
  Receive Date: 20060823
  Receipt Date: 20060208
  Transmission Date: 20061208
  Serious: Yes (Other)
  Sender: FDA-Public Use
  Company Number: 2006020724

PATIENT
  Age: 76 Year
  Sex: Male
  Weight: 104.3273 kg

DRUGS (9)
  1. NORVASC [Suspect]
     Indication: HYPERTENSION
     Dosage: 10 MG (10 MG,QD INTERVAL: EVEREY DAY),ORAL
     Route: 048
     Dates: start: 20060101
  2. BENICAR HCT [Concomitant]
  3. HYDROCHLOROTHIAZIDE [Concomitant]
  4. ZETIA [Concomitant]
  5. OXYBUTYNIN CHLORIDE [Concomitant]
  6. FLOMAX [Concomitant]
  7. NIASPAN [Concomitant]
  8. POTASSIUM (POTASSIUM) [Concomitant]
  9. FUROSEMIDE [Concomitant]

REACTIONS (4)
  - CONDITION AGGRAVATED [None]
  - DIZZINESS [None]
  - DYSPNOEA [None]
  - OEDEMA [None]
